FAERS Safety Report 6617809-6 (Version None)
Quarter: 2010Q1

REPORT INFORMATION
  Report Type: 
  Country: None (occurrence: None)
  Receive Date: 20100308
  Receipt Date: 20100225
  Transmission Date: 20100710
  Serious: Yes (Other)
  Sender: FDA-Public Use
  Company Number: CA-AMGEN-QUU395479

PATIENT
  Sex: Female

DRUGS (10)
  1. ENBREL [Suspect]
     Indication: DRUG USE FOR UNKNOWN INDICATION
     Route: 058
  2. PLAQUENIL [Concomitant]
  3. SYNTHROID [Concomitant]
  4. METFORMIN HYDROCHLORIDE [Concomitant]
  5. ACETYLSALICYLIC ACID ENTERIC COATED [Concomitant]
  6. CELEBREX [Concomitant]
  7. ADDERALL 30 [Concomitant]
  8. LIPITOR [Concomitant]
  9. ZITHROMAX [Concomitant]
  10. AMITRIPTYLINE HCL [Concomitant]

REACTIONS (2)
  - BONE MARROW FAILURE [None]
  - NEUTROPENIA [None]
